FAERS Safety Report 6106309-8 (Version None)
Quarter: 2009Q1

REPORT INFORMATION
  Report Type: 
  Country: None (occurrence: None)
  Receive Date: 20090306
  Receipt Date: 20090226
  Transmission Date: 20090719
  Serious: Yes (Hospitalization, Other)
  Sender: FDA-Public Use
  Company Number: CH-ABBOTT-09P-151-0559525-00

PATIENT
  Age: 75 Year
  Sex: Female

DRUGS (2)
  1. KLACID [Suspect]
     Indication: LUNG INFILTRATION
     Route: 048
     Dates: start: 20081201, end: 20081216
  2. CEFTRIAXONE SODIUM [Concomitant]
     Indication: LUNG INFILTRATION
     Route: 051
     Dates: start: 20081201

REACTIONS (4)
  - CORONARY ARTERY STENOSIS [None]
  - ELECTROCARDIOGRAM QT PROLONGED [None]
  - ELECTROCARDIOGRAM T WAVE INVERSION [None]
  - TORSADE DE POINTES [None]
